FAERS Safety Report 4680085-8 (Version None)
Quarter: 2005Q2

REPORT INFORMATION
  Report Type: 
  Country: None (occurrence: None)
  Receive Date: 20050531
  Receipt Date: 20050517
  Transmission Date: 20051028
  Serious: Yes (Hospitalization)
  Sender: FDA-Public Use
  Company Number: 200510345BNE

PATIENT
  Age: 77 Year
  Sex: Male
  Weight: 104 kg

DRUGS (8)
  1. ASPIRIN [Suspect]
     Dosage: 76 G, TOTAL DAILY,
     Dates: start: 19980101
  2. AVANDIA [Suspect]
     Dosage: 8 MG, TOTAL DAILY, ORAL
     Route: 048
     Dates: start: 20030601
  3. METFORMIN [Concomitant]
  4. LANSOPRAZOLE [Concomitant]
  5. GLICLAZIDE [Concomitant]
  6. ISOSORBIDE MONONITRATE [Concomitant]
  7. FRUSEMIDE [Concomitant]
  8. ATORVASTATIN CALCIUM [Concomitant]

REACTIONS (1)
  - DYSPNOEA [None]
